FAERS Safety Report 9273002 (Version 1)
Quarter: 2013Q2

REPORT INFORMATION
  Report Type: Spontaneous
  Country: US (occurrence: US)
  Receive Date: 20130506
  Receipt Date: 20130506
  Transmission Date: 20140414
  Serious: Yes (Other)
  Sender: FDA-Public Use
  Company Number: US-BAYER-2013-054169

PATIENT
  Age: 61 Year
  Sex: Male
  Weight: 85.26 kg

DRUGS (11)
  1. BAYER ASPIRIN REGIMEN ADULT LOW STRENGTH [Suspect]
     Indication: ISCHAEMIC HEART DISEASE PROPHYLAXIS
     Dosage: 1 DF, QD
     Route: 048
     Dates: start: 2013, end: 20130426
  2. BAYER ASPIRIN REGIMEN ADULT LOW STRENGTH [Suspect]
     Indication: ISCHAEMIC HEART DISEASE PROPHYLAXIS
     Dosage: 1 DF, QD
     Route: 048
     Dates: start: 2013, end: 20130426
  3. ALEVE CAPLET [Suspect]
     Indication: ARTHRITIS
     Dosage: 1 DF, PRN
     Route: 048
  4. ALEVE CAPLET [Suspect]
     Indication: ARTHRITIS
     Dosage: 1 DF, UNK
     Dates: start: 20130423
  5. ALEVE CAPLET [Suspect]
     Indication: ARTHRITIS
     Dosage: 1 DF, UNK
     Dates: start: 20130424
  6. IBUPROFEN [Concomitant]
  7. HYDROCHLOROTHIAZIDE [Concomitant]
  8. NEXIUM [Concomitant]
  9. SIMVASTATIN [Concomitant]
  10. NORVASC [Concomitant]
  11. LISINOPRIL [Concomitant]

REACTIONS (2)
  - Haematochezia [None]
  - Rectal haemorrhage [Not Recovered/Not Resolved]
